FAERS Safety Report 24329405 (Version 1)
Quarter: 2024Q3

REPORT INFORMATION
  Report Type: Report from Study
  Country: US (occurrence: US)
  Receive Date: 20240917
  Receipt Date: 20240917
  Transmission Date: 20241017
  Serious: Yes (Hospitalization)
  Sender: SPRINGWORKS THERAPEUTIC
  Company Number: US-SPRINGWORKS THERAPEUTICS-SW-001740

PATIENT
  Age: 17 Year
  Sex: Female

DRUGS (1)
  1. NIROGACESTAT [Suspect]
     Active Substance: NIROGACESTAT
     Indication: Desmoid tumour
     Dosage: 150 MILLIGRAM, BID
     Route: 048
     Dates: start: 20240529

REACTIONS (13)
  - Menstruation delayed [Unknown]
  - Hospitalisation [Unknown]
  - Hormone level abnormal [Unknown]
  - Malaise [Unknown]
  - Abdominal pain upper [Unknown]
  - Asthenia [Unknown]
  - Pain [Unknown]
  - Decreased appetite [Unknown]
  - Hypersomnia [Unknown]
  - Rash [Unknown]
  - Product dose omission issue [Unknown]
  - Intentional underdose [Unknown]
  - Off label use [Unknown]

NARRATIVE: CASE EVENT DATE: 20240501
